FAERS Safety Report 7909895-8 (Version None)
Quarter: 2011Q4

REPORT INFORMATION
  Report Type: 
  Country: None (occurrence: None)
  Receive Date: 20111111
  Receipt Date: 20111108
  Transmission Date: 20120403
  Serious: Yes (Hospitalization, Disabling, Other)
  Sender: FDA-Public Use
  Company Number: US-PFIZER INC-2011145163

PATIENT
  Sex: Male

DRUGS (4)
  1. LEXAPRO [Concomitant]
     Indication: DEPRESSION
     Dosage: UNK
     Dates: start: 20060101, end: 20070101
  2. CHANTIX [Suspect]
     Indication: SMOKING CESSATION THERAPY
     Dosage: STARTING AND CONTINUING MONTH PACK (5 REFILLS)
     Dates: start: 20070101, end: 20070701
  3. LEXAPRO [Concomitant]
     Indication: ANXIETY
  4. ASCORBIC ACID [Concomitant]
     Indication: SUPPLEMENTATION THERAPY
     Dosage: UNK
     Dates: start: 20060101

REACTIONS (8)
  - AGGRESSION [None]
  - ALCOHOLISM [None]
  - DEPRESSION [None]
  - ANXIETY [None]
  - INSOMNIA [None]
  - INJURY [None]
  - SUICIDAL IDEATION [None]
  - DISTURBANCE IN ATTENTION [None]
